FAERS Safety Report 5691742-9 (Version None)
Quarter: 2008Q2

REPORT INFORMATION
  Report Type: 
  Country: None (occurrence: None)
  Receive Date: 20080402
  Receipt Date: 20080325
  Transmission Date: 20081010
  Serious: Yes (Other)
  Sender: FDA-Public Use
  Company Number: US-ALLERGAN-0803569US

PATIENT
  Sex: Female

DRUGS (5)
  1. RESTASIS [Suspect]
     Indication: DRY EYE
     Dosage: 1 GTT, BID
     Route: 047
     Dates: start: 20060101
  2. LOVASTATIN [Concomitant]
     Indication: BLOOD CHOLESTEROL INCREASED
     Dosage: 20 MG, QD
     Route: 048
  3. LISINOPRIL [Concomitant]
     Indication: HYPERTENSION
     Dosage: 40 MG, QD
     Route: 048
  4. VERAPAMIL EXTENDED-RELEASE [Concomitant]
     Indication: HYPERTENSION
     Dosage: 180 MG, QD
     Route: 048
  5. PREMARIN [Concomitant]
     Indication: HYSTERECTOMY

REACTIONS (2)
  - BLOOD GLUCOSE INCREASED [None]
  - VISUAL ACUITY REDUCED [None]
